FAERS Safety Report 10005879 (Version 2)
Quarter: 2014Q1

REPORT INFORMATION
  Report Type: Report from Study
  Country: US (occurrence: US)
  Receive Date: 20140313
  Receipt Date: 20140313
  Transmission Date: 20141002
  Serious: Yes (Disabling, Other)
  Sender: FDA-Public Use
  Company Number: US-ROCHE-1220936

PATIENT
  Age: 58 Year
  Sex: Female
  Weight: 99.88 kg

DRUGS (4)
  1. ERIVEDGE [Suspect]
     Indication: BASAL CELL CARCINOMA
     Route: 048
     Dates: start: 20130409
  2. EXCEDRIN (UNITED STATES) [Concomitant]
     Indication: HEADACHE
     Route: 048
  3. EXCEDRIN (UNITED STATES) [Concomitant]
     Indication: MIGRAINE
  4. CLOBETASOL [Concomitant]
     Indication: RASH
     Dosage: DOSE: 1 APPLICATION EVERY DAY FOR 2 WEEKS.
     Route: 061
     Dates: start: 20121004

REACTIONS (6)
  - Headache [Not Recovered/Not Resolved]
  - Migraine [Not Recovered/Not Resolved]
  - Sunburn [Recovered/Resolved]
  - Fatigue [Not Recovered/Not Resolved]
  - Paraesthesia oral [Not Recovered/Not Resolved]
  - Dysgeusia [Not Recovered/Not Resolved]
